FAERS Safety Report 4837548-1 (Version None)
Quarter: 2005Q4

REPORT INFORMATION
  Report Type: 
  Country: None (occurrence: None)
  Receive Date: 20051123
  Receipt Date: 20051123
  Transmission Date: 20060501
  Serious: No
  Sender: FDA-Public Use
  Company Number: None

PATIENT
  Age: 58 Year
  Sex: Male
  Weight: 66.5 kg

DRUGS (8)
  1. IRON DEXTRAN [Suspect]
     Indication: ANAEMIA
     Dosage: 25MG, 25MG ONC, INTRAVEN
     Route: 042
  2. CALCIUM / VITAMIN D [Concomitant]
  3. DARBEPOETIN ALFA [Concomitant]
  4. FERROUS SO4 [Concomitant]
  5. AMITRIPTYLINE HCL [Concomitant]
  6. FELODIPINE [Concomitant]
  7. FOLIC ACID [Concomitant]
  8. SILDENAFIL CITRATE [Concomitant]

REACTIONS (1)
  - ANAPHYLACTIC REACTION [None]
